FAERS Safety Report 9546810 (Version 1)
Quarter: 2013Q3

REPORT INFORMATION
  Report Type: Spontaneous
  Country: FR (occurrence: FR)
  Receive Date: 20130924
  Receipt Date: 20130924
  Transmission Date: 20140515
  Serious: Yes (Hospitalization)
  Sender: FDA-Public Use
  Company Number: FR-ASTRAZENECA-2013SE70425

PATIENT
  Age: 33 Year
  Sex: Male

DRUGS (4)
  1. INEXIUM [Suspect]
     Indication: PROPHYLAXIS AGAINST GASTROINTESTINAL ULCER
     Route: 048
     Dates: start: 20130802, end: 20130815
  2. IOMERON [Suspect]
     Indication: COMPUTERISED TOMOGRAM
     Dosage: 400 MG/ML, 100 ML ONCE
     Route: 042
     Dates: start: 20130813, end: 20130813
  3. ACUPAN [Suspect]
     Indication: PAIN
     Route: 042
     Dates: start: 20130807, end: 20130815
  4. ALBENDAZOLE [Concomitant]
     Dates: start: 20130730

REACTIONS (2)
  - Eosinophilia [Recovering/Resolving]
  - Rash maculo-papular [Recovered/Resolved]
